FAERS Safety Report 5773827-1 (Version None)
Quarter: 2008Q2

REPORT INFORMATION
  Report Type: 
  Country: None (occurrence: None)
  Receive Date: 20080616
  Receipt Date: 20080603
  Transmission Date: 20081010
  Serious: Yes (Hospitalization)
  Sender: FDA-Public Use
  Company Number: NSADSS2001024551

PATIENT
  Sex: Female

DRUGS (10)
  1. REMICADE [Suspect]
     Route: 042
  2. REMICADE [Suspect]
     Route: 042
  3. REMICADE [Suspect]
     Route: 042
  4. REMICADE [Suspect]
     Route: 042
  5. REMICADE [Suspect]
     Route: 042
  6. REMICADE [Suspect]
     Indication: PSORIATIC ARTHROPATHY
     Route: 042
  7. PLACEBO [Suspect]
     Indication: PSORIATIC ARTHROPATHY
     Route: 041
     Dates: start: 20010901
  8. METFORMIN HCL [Concomitant]
     Route: 048
     Dates: start: 20001214
  9. ISOPTIN [Concomitant]
     Route: 048
     Dates: start: 19950101
  10. LEVOTHYROXINE SODIUM [Concomitant]
     Route: 048
     Dates: start: 19930101

REACTIONS (8)
  - BENIGN OVARIAN TUMOUR [None]
  - INFLUENZA LIKE ILLNESS [None]
  - PHARYNGITIS [None]
  - PYREXIA [None]
  - SINUSITIS [None]
  - URGE INCONTINENCE [None]
  - URINARY TRACT INFECTION [None]
  - UTERINE LEIOMYOMA [None]
